FAERS Safety Report 20465390 (Version 1)
Quarter: 2022Q1

REPORT INFORMATION
  Report Type: Spontaneous
  Country: US (occurrence: US)
  Receive Date: 20220212
  Receipt Date: 20220212
  Transmission Date: 20220423
  Serious: Yes (Hospitalization)
  Sender: FDA-Public Use
  Company Number: US-JNJFOC-20220214182

PATIENT
  Age: 3 Decade
  Sex: Female
  Weight: 64.922 kg

DRUGS (2)
  1. STELARA [Suspect]
     Active Substance: USTEKINUMAB
     Indication: Psoriasis
     Dosage: SECOND DOSE IN 1 MONTH AND THEN SHE HAD TAKEN EVERY 3 WEEKS
     Route: 058
     Dates: start: 202103
  2. STELARA [Suspect]
     Active Substance: USTEKINUMAB
     Indication: Psoriatic arthropathy

REACTIONS (4)
  - Aneurysm ruptured [Unknown]
  - Urinary tract infection [Not Recovered/Not Resolved]
  - Pyrexia [Unknown]
  - Psoriasis [Recovered/Resolved]

NARRATIVE: CASE EVENT DATE: 20210301
